FAERS Safety Report 4690072-1 (Version None)
Quarter: 2005Q2

REPORT INFORMATION
  Report Type: 
  Country: None (occurrence: None)
  Receive Date: 20050614
  Receipt Date: 20050606
  Transmission Date: 20051028
  Serious: No
  Sender: FDA-Public Use
  Company Number: 2005-129121-NL

PATIENT
  Age: 52 Year
  Sex: Male

DRUGS (3)
  1. MIRTAZAPINE [Suspect]
     Indication: DEPRESSION
     Dosage: 1 DF/2 DF/3 DP ORAL
     Route: 048
     Dates: start: 20050330, end: 20050405
  2. MIRTAZAPINE [Suspect]
     Indication: DEPRESSION
     Dosage: 1 DF/2 DF/3 DP ORAL
     Route: 048
     Dates: start: 20050406, end: 20050412
  3. MIRTAZAPINE [Suspect]
     Indication: DEPRESSION
     Dosage: 1 DF/2 DF/3 DP ORAL
     Route: 048
     Dates: start: 20050413, end: 20050517

REACTIONS (6)
  - ALANINE AMINOTRANSFERASE INCREASED [None]
  - ARTHRALGIA [None]
  - ASTHENIA [None]
  - HEART RATE INCREASED [None]
  - LYMPHOCYTE COUNT DECREASED [None]
  - WHITE BLOOD CELL COUNT INCREASED [None]
